FAERS Safety Report 6745623-X (Version None)
Quarter: 2010Q2

REPORT INFORMATION
  Report Type: 
  Country: None (occurrence: None)
  Receive Date: 20100528
  Receipt Date: 20100518
  Transmission Date: 20101027
  Serious: Yes (Life-Threatening)
  Sender: FDA-Public Use
  Company Number: FR-JNJFOC-20100508756

PATIENT
  Sex: Female

DRUGS (22)
  1. TOPALGIC [Suspect]
     Indication: DRUG USE FOR UNKNOWN INDICATION
     Route: 048
  2. LASIX [Suspect]
     Indication: DRUG USE FOR UNKNOWN INDICATION
     Route: 048
  3. MEPRONIZINE [Interacting]
     Indication: DRUG USE FOR UNKNOWN INDICATION
     Route: 048
  4. SECTRAL [Suspect]
     Indication: DRUG USE FOR UNKNOWN INDICATION
     Route: 048
  5. TERCIAN [Interacting]
     Indication: INSOMNIA
     Route: 048
  6. TERCIAN [Interacting]
     Indication: AGITATION
     Route: 048
  7. LOXAPAC [Interacting]
     Indication: DRUG USE FOR UNKNOWN INDICATION
     Route: 048
  8. TRIHEXYPHENIDYL HCL [Suspect]
     Indication: DRUG USE FOR UNKNOWN INDICATION
     Route: 048
  9. RIVOTRIL [Interacting]
     Indication: DRUG USE FOR UNKNOWN INDICATION
     Route: 065
  10. THERALEN [Interacting]
     Indication: DRUG USE FOR UNKNOWN INDICATION
     Route: 048
  11. ATHYMIL [Interacting]
     Indication: DRUG USE FOR UNKNOWN INDICATION
     Route: 048
  12. LOXEN [Suspect]
     Indication: DRUG USE FOR UNKNOWN INDICATION
     Route: 048
  13. NORSET [Interacting]
     Indication: INSOMNIA
     Route: 048
  14. NORSET [Interacting]
     Indication: AGITATION
     Route: 048
  15. SERESTA [Interacting]
     Indication: INSOMNIA
     Route: 048
  16. SERESTA [Interacting]
     Indication: AGITATION
     Route: 048
  17. RISPERDAL [Interacting]
     Indication: DRUG USE FOR UNKNOWN INDICATION
     Route: 048
  18. DOLIPRANE [Concomitant]
     Route: 065
  19. IXEL [Concomitant]
     Route: 065
  20. PENTOXIFYLLINE [Concomitant]
     Route: 065
  21. RAMIPRIL [Concomitant]
     Route: 065
  22. ECONAZOLE NITRATE [Concomitant]
     Route: 065

REACTIONS (5)
  - AGITATION [None]
  - COMA [None]
  - CONFUSIONAL STATE [None]
  - DRUG INTERACTION [None]
  - INSOMNIA [None]
